FAERS Safety Report 12381314 (Version 1)
Quarter: 2016Q2

REPORT INFORMATION
  Report Type: Spontaneous
  Country: US (occurrence: None)
  Receive Date: 20160517
  Receipt Date: 20160517
  Transmission Date: 20160815
  Serious: No
  Sender: FDA-Public Use
  Company Number: None

PATIENT
  Age: 62 Year
  Sex: Female

DRUGS (9)
  1. IBRANCE [Suspect]
     Active Substance: PALBOCICLIB
     Indication: NEOPLASM MALIGNANT
     Dosage: 125MG QD1-21 THEN 7 OFF PO
     Route: 048
     Dates: start: 20160331
  2. VITAMIN D [Concomitant]
     Active Substance: CHOLECALCIFEROL
  3. LETROZOLE. [Concomitant]
     Active Substance: LETROZOLE
  4. ALBUTEROL. [Concomitant]
     Active Substance: ALBUTEROL
  5. ASPIRIN. [Concomitant]
     Active Substance: ASPIRIN
  6. CALCIUM [Concomitant]
     Active Substance: CALCIUM
  7. IBUPROFEN. [Concomitant]
     Active Substance: IBUPROFEN
  8. VALACYCLOVIR [Concomitant]
     Active Substance: VALACYCLOVIR HYDROCHLORIDE
  9. ZYRTEC [Concomitant]
     Active Substance: CETIRIZINE HYDROCHLORIDE

REACTIONS (3)
  - Dermatitis [None]
  - Blister [None]
  - Purpura [None]

NARRATIVE: CASE EVENT DATE: 20160414
